FAERS Safety Report 19037686 (Version 3)
Quarter: 2021Q2

REPORT INFORMATION
  Report Type: Spontaneous
  Country: UA (occurrence: UA)
  Receive Date: 20210322
  Receipt Date: 20210503
  Transmission Date: 20210717
  Serious: Yes (Death, Hospitalization)
  Sender: FDA-Public Use
  Company Number: UA-CELGENEUS-UKR-20210305258

PATIENT
  Age: 60 Year
  Sex: Male
  Weight: 118.5 kg

DRUGS (16)
  1. OMEPRAZOLE. [Concomitant]
     Active Substance: OMEPRAZOLE
     Indication: PREMEDICATION
     Route: 065
  2. DEXAMETHASONUM [Concomitant]
     Active Substance: DEXAMETHASONE
     Indication: HYPOTENSION
  3. CARBOPLATIN. [Suspect]
     Active Substance: CARBOPLATIN
     Indication: LUNG NEOPLASM MALIGNANT
     Dosage: 847.8 MILLIGRAM
     Route: 041
     Dates: start: 20210217, end: 20210217
  4. BISOPROLOL [Concomitant]
     Active Substance: BISOPROLOL
     Indication: PRODUCT USED FOR UNKNOWN INDICATION
     Route: 065
  5. EMETON [Concomitant]
     Indication: PREMEDICATION
     Route: 065
  6. ESSENTIALE [Concomitant]
     Indication: PROPHYLAXIS
     Route: 065
  7. DICINONE [Concomitant]
     Indication: THROMBOCYTOPENIA
     Route: 065
     Dates: start: 20210301
  8. HARTMAN SOLUTION [Concomitant]
     Indication: PROPHYLAXIS
     Route: 065
  9. CORAXAN [Concomitant]
     Indication: SINUS TACHYCARDIA
     Route: 065
     Dates: start: 20210311
  10. SERPLULIMAB. [Suspect]
     Active Substance: SERPLULIMAB
     Indication: LUNG NEOPLASM MALIGNANT
     Dosage: 544.6 MILLIGRAM
     Route: 041
     Dates: start: 20210217, end: 20210217
  11. METHYL URACILUM [Concomitant]
     Indication: LEUKOPENIA
     Route: 065
     Dates: start: 20210301
  12. MAGNICOR [Concomitant]
     Indication: PRODUCT USED FOR UNKNOWN INDICATION
     Dosage: 75 MILLIGRAM
     Route: 048
  13. DEXAMETHASONUM [Concomitant]
     Active Substance: DEXAMETHASONE
     Indication: PREMEDICATION
     Route: 065
     Dates: start: 20210222
  14. LOPERAMIDE [Concomitant]
     Active Substance: LOPERAMIDE
     Indication: DIARRHOEA
     Route: 065
     Dates: start: 20210226
  15. ABRAXANE [Suspect]
     Active Substance: PACLITAXEL
     Indication: LUNG NEOPLASM MALIGNANT
     Dosage: 240 MILLIGRAM
     Route: 041
     Dates: start: 20210217, end: 20210303
  16. ENALAPRIL [Concomitant]
     Active Substance: ENALAPRIL
     Indication: PRODUCT USED FOR UNKNOWN INDICATION
     Route: 065

REACTIONS (1)
  - Acute myocardial infarction [Fatal]

NARRATIVE: CASE EVENT DATE: 20210315
